FAERS Safety Report 5097549-8 (Version None)
Quarter: 2006Q3

REPORT INFORMATION
  Report Type: 
  Country: None (occurrence: None)
  Receive Date: 20060901
  Receipt Date: 20060821
  Transmission Date: 20061208
  Serious: Yes (Hospitalization)
  Sender: FDA-Public Use
  Company Number: 2006092321

PATIENT
  Age: 83 Year
  Sex: Female
  Weight: 65 kg

DRUGS (6)
  1. LYRICA [Suspect]
     Indication: NEURALGIA
     Dosage: 150 MG (75 MG), ORAL
     Route: 048
     Dates: start: 20051212, end: 20051214
  2. LASIX [Concomitant]
  3. ENALAPRIL MALEATE [Concomitant]
  4. LANTUS [Concomitant]
  5. HUMALOG [Concomitant]
  6. INSULIN [Concomitant]

REACTIONS (4)
  - MUSCLE SPASMS [None]
  - MUSCLE TWITCHING [None]
  - NAUSEA [None]
  - VOMITING [None]
